FAERS Safety Report 10548281 (Version 1)
Quarter: 2014Q4

REPORT INFORMATION
  Report Type: Spontaneous
  Country: US (occurrence: None)
  Receive Date: 20141024
  Receipt Date: 20141024
  Transmission Date: 20150529
  Serious: Yes (Hospitalization)
  Sender: FDA-Public Use
  Company Number: 2014SGN01110

PATIENT
  Age: 65 Year
  Sex: Female
  Weight: 62 kg

DRUGS (2)
  1. BENDAMUSTINE HYDROCHLORIDE (BENDAMUSTINE HYDROCHLORIDE) [Suspect]
     Active Substance: BENDAMUSTINE HYDROCHLORIDE
     Indication: HODGKIN^S DISEASE
     Route: 042
     Dates: start: 20140807, end: 20140828
  2. BRENTUXIMAB VEDOTIN [Suspect]
     Active Substance: BRENTUXIMAB VEDOTIN
     Indication: HODGKIN^S DISEASE
     Route: 042
     Dates: start: 20140807, end: 20140827

REACTIONS (2)
  - Hypotension [None]
  - Syncope [None]

NARRATIVE: CASE EVENT DATE: 20140828
